FAERS Safety Report 7729033-4 (Version None)
Quarter: 2011Q3

REPORT INFORMATION
  Report Type: 
  Country: None (occurrence: None)
  Receive Date: 20110906
  Receipt Date: 20110829
  Transmission Date: 20111222
  Serious: Yes (Death, Other)
  Sender: FDA-Public Use
  Company Number: PL-TEVA-298803ISR

PATIENT
  Age: 69 Year
  Sex: Female

DRUGS (10)
  1. QUETIAPINE [Suspect]
     Dosage: 300 MILLIGRAM;
  2. REBOXETINE [Suspect]
     Indication: DEPRESSION
     Dosage: 4 MILLIGRAM;
  3. SERTRALINE HYDROCHLORIDE [Suspect]
     Indication: DEPRESSION
     Dosage: 100 MILLIGRAM;
  4. VENLAFAXINE HYDROCHLORIDE [Suspect]
     Indication: DEPRESSION
     Dosage: 225 MILLIGRAM;
  5. MIRTAZAPINE [Suspect]
     Dosage: 45 MILLIGRAM;
  6. ESCITALOPRAM [Suspect]
     Dosage: 20 MILLIGRAM;
  7. OLANZAPINE [Suspect]
     Dosage: 5 MILLIGRAM;
  8. QUETIAPINE [Suspect]
     Indication: DEPRESSION
     Dosage: 100 MILLIGRAM;
  9. PAROXETINE HCL [Suspect]
     Indication: DEPRESSION
     Dosage: 20 MILLIGRAM;
  10. MIRTAZAPINE [Suspect]
     Indication: DEPRESSION
     Dosage: 30 MILLIGRAM;

REACTIONS (2)
  - DEATH [None]
  - EMBOLISM VENOUS [None]
